FAERS Safety Report 22678568 (Version 3)
Quarter: 2023Q4

REPORT INFORMATION
  Report Type: Spontaneous
  Country: US (occurrence: US)
  Receive Date: 20230706
  Receipt Date: 20231026
  Transmission Date: 20240110
  Serious: Yes (Death, Other)
  Sender: FDA-Public Use
  Company Number: US-PFIZER INC-PV202300116333

PATIENT
  Age: 87 Year
  Sex: Female

DRUGS (1)
  1. XELJANZ XR [Suspect]
     Active Substance: TOFACITINIB CITRATE
     Dosage: UNK

REACTIONS (8)
  - Death [Fatal]
  - Gastric cancer [Unknown]
  - Mobility decreased [Unknown]
  - Nervousness [Unknown]
  - Gastrooesophageal reflux disease [Unknown]
  - Memory impairment [Unknown]
  - Bedridden [Unknown]
  - Disorientation [Unknown]

NARRATIVE: CASE EVENT DATE: 20230901
